FAERS Safety Report 25902517 (Version 2)
Quarter: 2025Q4

REPORT INFORMATION
  Report Type: Spontaneous
  Country: AU (occurrence: AU)
  Receive Date: 20251009
  Receipt Date: 20251110
  Transmission Date: 20260118
  Serious: Yes (Death)
  Sender: GILEAD
  Company Number: AU-GILEAD-2025-0731903

PATIENT
  Sex: Male

DRUGS (1)
  1. TECARTUS [Suspect]
     Active Substance: BREXUCABTAGENE AUTOLEUCEL
     Indication: Mantle cell lymphoma
     Dosage: UNK
     Route: 065

REACTIONS (1)
  - Infection [Fatal]
